FAERS Safety Report 5814563-2 (Version None)
Quarter: 2008Q3

REPORT INFORMATION
  Report Type: 
  Country: None (occurrence: None)
  Receive Date: 20080718
  Receipt Date: 20070830
  Transmission Date: 20090109
  Serious: No
  Sender: FDA-Public Use
  Company Number: US-KINGPHARMUSA00001-K200701118

PATIENT

DRUGS (5)
  1. LEVOXYL [Suspect]
     Indication: THYROID DISORDER
     Dosage: 150 MCG, QD
     Route: 048
     Dates: start: 19930101, end: 20070601
  2. LEVOXYL [Suspect]
     Dosage: 125 MCG, QD
     Route: 048
     Dates: start: 20070601
  3. LEVOXYL [Suspect]
     Dosage: 137 MCG, QD
     Route: 048
     Dates: start: 20070901
  4. KLONOPIN [Concomitant]
     Indication: ANXIETY
     Dosage: .5 UNK, QD
  5. CITALOPRAM HYDROBROMIDE [Concomitant]
     Indication: ANTIDEPRESSANT THERAPY
     Dosage: 40 MG, QD

REACTIONS (5)
  - BLOOD THYROID STIMULATING HORMONE ABNORMAL [None]
  - CHOKING SENSATION [None]
  - SENSATION OF FOREIGN BODY [None]
  - TREMOR [None]
  - WEIGHT INCREASED [None]
